FAERS Safety Report 8191076-7 (Version None)
Quarter: 2012Q1

REPORT INFORMATION
  Report Type: 
  Country: None (occurrence: None)
  Receive Date: 20120307
  Receipt Date: 20120305
  Transmission Date: 20120608
  Serious: Yes (Hospitalization, Congenital Anomaly)
  Sender: FDA-Public Use
  Company Number: US-GLAXOSMITHKLINE-A0930793A

PATIENT
  Sex: Male
  Weight: 1.9 kg

DRUGS (5)
  1. STADOL [Concomitant]
  2. MAGNESIUM [Concomitant]
  3. BETAMETHASONE [Concomitant]
  4. PAXIL [Suspect]
     Indication: ANXIETY
     Dosage: 20MG PER DAY
     Route: 064
     Dates: start: 20000209
  5. AMPICILLIN [Concomitant]

REACTIONS (9)
  - INTRAVENTRICULAR HAEMORRHAGE [None]
  - FOETAL EXPOSURE DURING PREGNANCY [None]
  - CONGENITAL HYDROCEPHALUS [None]
  - HYDROCELE [None]
  - NEONATAL RESPIRATORY DISTRESS SYNDROME [None]
  - GASTROOESOPHAGEAL REFLUX DISEASE [None]
  - ATTENTION DEFICIT/HYPERACTIVITY DISORDER [None]
  - PREMATURE BABY [None]
  - CONGENITAL TORTICOLLIS [None]
